FAERS Safety Report 21943957 (Version 1)
Quarter: 2023Q1

REPORT INFORMATION
  Report Type: Spontaneous
  Country: None (occurrence: NO)
  Receive Date: 20230202
  Receipt Date: 20230202
  Transmission Date: 20230418
  Serious: Yes (Other)
  Sender: FDA-Public Use
  Company Number: NO-Therakind Limited-2137392

PATIENT
  Age: 77 Year
  Sex: Male

DRUGS (7)
  1. METHOTREXATE [Suspect]
     Active Substance: METHOTREXATE
     Indication: Diffuse large B-cell lymphoma
     Dates: start: 20220328, end: 20220419
  2. POLIVY [Suspect]
     Active Substance: POLATUZUMAB VEDOTIN-PIIQ
  3. BENDAMUSTINE HYDROCHLORIDE [Suspect]
     Active Substance: BENDAMUSTINE HYDROCHLORIDE
  4. RITUXIMAB [Suspect]
     Active Substance: RITUXIMAB
  5. IFOSFAMIDE [Suspect]
     Active Substance: IFOSFAMIDE
  6. ETOPOSIDE [Suspect]
     Active Substance: ETOPOSIDE
  7. CYCLOPHOSPHAMIDE\DOXORUBICIN\PREDNISONE\VINCRISTINE [Suspect]
     Active Substance: CYCLOPHOSPHAMIDE\DOXORUBICIN\PREDNISONE\VINCRISTINE

REACTIONS (2)
  - Disease progression [Unknown]
  - Product use in unapproved indication [Unknown]
